FAERS Safety Report 11050232 (Version 1)
Quarter: 2015Q2

REPORT INFORMATION
  Report Type: Spontaneous
  Country: US (occurrence: US)
  Receive Date: 20150421
  Receipt Date: 20150421
  Transmission Date: 20150821
  Serious: Yes (Other)
  Sender: FDA-Public Use
  Company Number: US-ABBVIE-15K-163-1377961-00

PATIENT

DRUGS (1)
  1. HUMIRA [Suspect]
     Active Substance: ADALIMUMAB
     Indication: CROHN^S DISEASE
     Route: 065

REACTIONS (5)
  - Disorientation [Unknown]
  - Encephalitis [Unknown]
  - Unresponsive to stimuli [Unknown]
  - Cerebral thrombosis [Unknown]
  - Nuclear magnetic resonance imaging abnormal [Unknown]
